FAERS Safety Report 22007285 (Version 2)
Quarter: 2023Q2

REPORT INFORMATION
  Report Type: Spontaneous
  Country: US (occurrence: US)
  Receive Date: 20230217
  Receipt Date: 20230412
  Transmission Date: 20230721
  Serious: No
  Sender: FDA-Public Use
  Company Number: US-MICRO LABS LIMITED-ML2023-00704

PATIENT
  Age: 75 Year
  Sex: Female

DRUGS (2)
  1. DORZOLAMIDE [Suspect]
     Active Substance: DORZOLAMIDE
     Indication: Glaucoma
     Route: 047
  2. TEAR DROPS [Concomitant]

REACTIONS (6)
  - Eye infection [Unknown]
  - Eye inflammation [Unknown]
  - Ocular hyperaemia [Not Recovered/Not Resolved]
  - Eye pain [Recovering/Resolving]
  - Wrong technique in product usage process [Unknown]
  - Product dispensing issue [Unknown]
